FAERS Safety Report 8976987 (Version 1)
Quarter: 2012Q4

REPORT INFORMATION
  Report Type: 
  Country: US (occurrence: US)
  Receive Date: 20121220
  Receipt Date: 20121220
  Transmission Date: 20130627
  Serious: Yes (Hospitalization)
  Sender: FDA-Public Use
  Company Number: US-GLAXOSMITHKLINE-A0974800A

PATIENT
  Sex: Female

DRUGS (4)
  1. SORIATANE [Suspect]
     Indication: PSORIASIS
     Route: 048
  2. LIPITOR [Concomitant]
  3. VITAMIN [Concomitant]
  4. MACROBID [Concomitant]

REACTIONS (1)
  - Blood uric acid increased [Unknown]
